FAERS Safety Report 5548140-8 (Version None)
Quarter: 2007Q4

REPORT INFORMATION
  Report Type: 
  Country: None (occurrence: None)
  Receive Date: 20071211
  Receipt Date: 20070308
  Transmission Date: 20080405
  Serious: No
  Sender: FDA-Public Use
  Company Number: US-AMGEN-KDL214307

PATIENT
  Sex: Female

DRUGS (1)
  1. ENBREL [Suspect]
     Indication: PSORIASIS
     Route: 058
     Dates: start: 20050101, end: 20070312

REACTIONS (8)
  - ASTHENIA [None]
  - BACK PAIN [None]
  - DIARRHOEA [None]
  - FATIGUE [None]
  - GASTROINTESTINAL DISORDER [None]
  - IODINE ALLERGY [None]
  - NAUSEA [None]
  - SINUSITIS [None]
